FAERS Safety Report 4757067-0 (Version None)
Quarter: 2005Q3

REPORT INFORMATION
  Report Type: 
  Country: None (occurrence: None)
  Receive Date: 20050826
  Receipt Date: 20050818
  Transmission Date: 20060218
  Serious: Yes (Death, Hospitalization)
  Sender: FDA-Public Use
  Company Number: HQWYE817501JUL03

PATIENT
  Age: 51 Year
  Sex: Male
  Weight: 69.5 kg

DRUGS (3)
  1. MYLOTARG [Suspect]
     Indication: ACUTE MYELOID LEUKAEMIA
     Dosage: 9 MG/M^2 1X PER 1DAY, INTRAVENOUS
     Route: 042
     Dates: start: 20030620, end: 20030620
  2. ACYCLOVIR [Concomitant]
  3. FLUCONAZOLE [Concomitant]

REACTIONS (18)
  - ASCITES [None]
  - BLAST CELL PROLIFERATION [None]
  - BODY TEMPERATURE DECREASED [None]
  - CARDIAC FAILURE CONGESTIVE [None]
  - DILATATION ATRIAL [None]
  - FEBRILE NEUTROPENIA [None]
  - HAEMATOCRIT DECREASED [None]
  - HAEMOGLOBIN DECREASED [None]
  - INTERSTITIAL LUNG DISEASE [None]
  - LUNG INFECTION [None]
  - OEDEMA PERIPHERAL [None]
  - PERICARDIAL EFFUSION [None]
  - PLEURAL EFFUSION [None]
  - PNEUMONIA [None]
  - PULMONARY HYPERTENSION [None]
  - SEPSIS [None]
  - VENOOCCLUSIVE DISEASE [None]
  - WEIGHT INCREASED [None]
